FAERS Safety Report 8537468-5 (Version None)
Quarter: 2012Q3

REPORT INFORMATION
  Report Type: 
  Country: None (occurrence: None)
  Receive Date: 20120725
  Receipt Date: 20120718
  Transmission Date: 20120928
  Serious: No
  Sender: FDA-Public Use
  Company Number: US-TEVA-349436USA

PATIENT
  Sex: Female
  Weight: 77.634 kg

DRUGS (2)
  1. PRAMIPEXOLE DIHYCHLORIDE [Concomitant]
     Indication: PARKINSON'S DISEASE
     Dosage: .75 MILLIGRAM;
     Route: 048
  2. AZILECT [Suspect]
     Indication: PARKINSON'S DISEASE
     Dosage: .5 MILLIGRAM;
     Route: 048
     Dates: start: 20111201

REACTIONS (1)
  - VEIN DISORDER [None]
